FAERS Safety Report 8621790 (Version 3)
Quarter: 2013Q2

REPORT INFORMATION
  Report Type: Report from Study
  Country: MX (occurrence: MX)
  Receive Date: 20120619
  Receipt Date: 20130425
  Transmission Date: 20140414
  Serious: Yes (Death, Hospitalization, Other)
  Sender: FDA-Public Use
  Company Number: PHHY2012MX052118

PATIENT
  Age: 83 Year
  Sex: Female

DRUGS (6)
  1. ACLASTA [Suspect]
     Indication: OSTEOPOROSIS
     Dosage: 5 MG, YEARLY
     Route: 042
     Dates: start: 2006
  2. OMEPRAZOL [Concomitant]
     Indication: GASTRITIS
     Dosage: 2 DF, DIALY
     Dates: start: 2000
  3. SERETIDE [Concomitant]
     Indication: BRONCHIAL DISORDER
     Dosage: 2 DF, UNK
  4. SPIRIVA [Concomitant]
     Indication: BRONCHIAL DISORDER
     Dosage: 1 DF, DAILY
  5. ATROVENT [Concomitant]
     Dosage: 1 DF, UNK
  6. DILACORON [Concomitant]
     Indication: CARDIAC DISORDER
     Dosage: 40 MG, UNK

REACTIONS (8)
  - Respiratory failure [Fatal]
  - Cardiac failure [Fatal]
  - Cardiopulmonary failure [Fatal]
  - Emphysema [Fatal]
  - Gastrointestinal haemorrhage [Recovered/Resolved]
  - Abdominal pain upper [Recovered/Resolved]
  - Anaemia [Recovered/Resolved]
  - Wrist fracture [Recovered/Resolved]
